FAERS Safety Report 6063390-2 (Version None)
Quarter: 2009Q1

REPORT INFORMATION
  Report Type: 
  Country: None (occurrence: None)
  Receive Date: 20090129
  Receipt Date: 20090109
  Transmission Date: 20090719
  Serious: Yes (Other)
  Sender: FDA-Public Use
  Company Number: 8041127

PATIENT
  Sex: Female
  Weight: 2.523 kg

DRUGS (8)
  1. KEPPRA [Suspect]
     Indication: EPILEPSY
     Dosage: 1000 MG 2/D TRP
     Route: 064
     Dates: end: 20081107
  2. KEPPRA [Suspect]
     Indication: EPILEPSY
     Dosage: 3000 MG /D TRP
     Route: 064
     Dates: start: 20081107, end: 20081119
  3. TEGRETOL [Concomitant]
  4. VALIUM [Concomitant]
  5. NORCO [Concomitant]
  6. VISTARIL [Concomitant]
  7. BUSPAR [Concomitant]
  8. ZOFRAN [Concomitant]

REACTIONS (2)
  - MATERNAL DRUGS AFFECTING FOETUS [None]
  - PREMATURE BABY [None]
